FAERS Safety Report 20779281 (Version 1)
Quarter: 2022Q2

REPORT INFORMATION
  Report Type: Spontaneous
  Country: US (occurrence: None)
  Receive Date: 20220503
  Receipt Date: 20220503
  Transmission Date: 20220721
  Serious: No
  Sender: FDA-Public Use
  Company Number: None

PATIENT

DRUGS (2)
  1. AMOXICILLIN AND CLAVULANATE POTASSIUM [Suspect]
     Active Substance: AMOXICILLIN\CLAVULANATE POTASSIUM
  2. DEVICE [Suspect]
     Active Substance: DEVICE

REACTIONS (3)
  - Transcription medication error [None]
  - Circumstance or information capable of leading to medication error [None]
  - Product selection error [None]
